FAERS Safety Report 5809199-3 (Version None)
Quarter: 2008Q3

REPORT INFORMATION
  Report Type: 
  Country: None (occurrence: None)
  Receive Date: 20080714
  Receipt Date: 20080708
  Transmission Date: 20090109
  Serious: Yes (Hospitalization)
  Sender: FDA-Public Use
  Company Number: IE-AMGEN-UK293490

PATIENT
  Sex: Male

DRUGS (3)
  1. NEULASTA [Suspect]
     Indication: CHEMOTHERAPY
  2. GEMCITABINE [Concomitant]
  3. CISPLATIN [Concomitant]

REACTIONS (2)
  - ABDOMINAL PAIN [None]
  - NEUTROPHIL COUNT INCREASED [None]
